FAERS Safety Report 7906559-1 (Version None)
Quarter: 2011Q4

REPORT INFORMATION
  Report Type: 
  Country: None (occurrence: None)
  Receive Date: 20111110
  Receipt Date: 20110602
  Transmission Date: 20120403
  Serious: No
  Sender: FDA-Public Use
  Company Number: US-MUTUAL PHARMACEUTICAL COMPANY, INC.-PNTM20110004

PATIENT
  Sex: Female
  Weight: 70.37 kg

DRUGS (2)
  1. LISINOPRIL [Concomitant]
     Indication: HYPERTENSION
     Route: 048
     Dates: start: 20101001
  2. PHENTERMINE HYDROCHLORIDE [Suspect]
     Indication: WEIGHT DECREASED
     Route: 048
     Dates: start: 20110519, end: 20110601

REACTIONS (2)
  - FATIGUE [None]
  - SLUGGISHNESS [None]
